FAERS Safety Report 22643349 (Version 3)
Quarter: 2024Q1

REPORT INFORMATION
  Report Type: Other
  Country: IE (occurrence: IE)
  Receive Date: 20230627
  Receipt Date: 20240212
  Transmission Date: 20240409
  Serious: Yes (Other)
  Sender: FDA-Public Use
  Company Number: IE-DEXPHARM-20231548

PATIENT
  Sex: Female

DRUGS (1)
  1. OMEPRAZOLE [Suspect]
     Active Substance: OMEPRAZOLE
     Indication: Gastrooesophageal reflux disease
     Dosage: FROM 30WEEKS^  GESTATION TO BIRTH

REACTIONS (2)
  - Zinc deficiency [Unknown]
  - Exposure during pregnancy [Unknown]
